APPROVED DRUG PRODUCT: LAMOTRIGINE
Active Ingredient: LAMOTRIGINE
Strength: 25MG
Dosage Form/Route: TABLET, ORALLY DISINTEGRATING;ORAL
Application: A213271 | Product #001 | TE Code: AB
Applicant: AJANTA PHARMA LTD
Approved: Jan 19, 2021 | RLD: No | RS: No | Type: RX